FAERS Safety Report 19191137 (Version 1)
Quarter: 2021Q2

REPORT INFORMATION
  Report Type: Spontaneous
  Country: CA (occurrence: CA)
  Receive Date: 20210428
  Receipt Date: 20210428
  Transmission Date: 20210717
  Serious: Yes (Hospitalization, Other)
  Sender: FDA-Public Use
  Company Number: CA-PURDUE-USA-2021-0251538

PATIENT
  Age: 68 Year
  Sex: Male

DRUGS (6)
  1. PREDNISONE. [Concomitant]
     Active Substance: PREDNISONE
     Indication: ASTHMA
     Dosage: 50 MG, UNK
     Route: 048
  2. UNIPHYL [Suspect]
     Active Substance: THEOPHYLLINE ANHYDROUS
     Indication: PRODUCT USED FOR UNKNOWN INDICATION
     Dosage: UNK
     Route: 048
  3. SALBUTAMOL SULFATE [Suspect]
     Active Substance: ALBUTEROL SULFATE
     Indication: PRODUCT USED FOR UNKNOWN INDICATION
     Dosage: UNK
     Route: 065
  4. TIOTROPIUM [Suspect]
     Active Substance: TIOTROPIUM
     Indication: PRODUCT USED FOR UNKNOWN INDICATION
     Dosage: 18 MCG, BID (2 EVERY 1 DAYS)
     Route: 065
  5. BREO ELLIPTA [Suspect]
     Active Substance: FLUTICASONE FUROATE\VILANTEROL TRIFENATATE
     Indication: PRODUCT USED FOR UNKNOWN INDICATION
     Dosage: UNK
     Route: 065
  6. ZENHALE [Suspect]
     Active Substance: FORMOTEROL FUMARATE\MOMETASONE FUROATE
     Indication: PRODUCT USED FOR UNKNOWN INDICATION
     Dosage: 2 DF, BID (2 EVERY 1 DAYS)
     Route: 065

REACTIONS (10)
  - Dyspnoea exertional [Recovered/Resolved]
  - Obstructive airways disorder [Recovered/Resolved]
  - Therapeutic product effect incomplete [Recovered/Resolved]
  - Eosinophil count increased [Recovered/Resolved]
  - Helicobacter infection [Recovered/Resolved]
  - Venous thrombosis limb [Recovered/Resolved]
  - Asthma [Recovered/Resolved]
  - Drug intolerance [Recovered/Resolved]
  - Lung hyperinflation [Recovered/Resolved]
  - Wheezing [Recovered/Resolved]
